FAERS Safety Report 7650272-5 (Version None)
Quarter: 2011Q3

REPORT INFORMATION
  Report Type: 
  Country: None (occurrence: None)
  Receive Date: 20110719
  Receipt Date: 20110113
  Transmission Date: 20111222
  Serious: Yes (Hospitalization)
  Sender: FDA-Public Use
  Company Number: 163-21880-10091171

PATIENT
  Age: 85 Year
  Sex: Male
  Weight: 60 kg

DRUGS (8)
  1. CEFEPIME (CEFEPIME) (UNKNOWN) [Concomitant]
  2. BACTRIM DS [Concomitant]
  3. AZACITIDINE [Suspect]
     Indication: ACUTE MYELOID LEUKAEMIA
     Dosage: 75 MG/M2, QD, SC
     Route: 058
     Dates: start: 20100716, end: 20100722
  4. LEVAQUIN (LEVOFLOXACIN) (UNKNOWN) [Concomitant]
  5. MULTIVITAMINS (MULTIVITAMINS) (UNKNOWN) [Concomitant]
  6. ZOFRAN [Concomitant]
  7. REVLIMID [Suspect]
     Indication: ACUTE MYELOID LEUKAEMIA
     Dosage: 50 MG, QD, PO
     Route: 048
     Dates: start: 20100723, end: 20100817
  8. ALLOPURINOL [Concomitant]

REACTIONS (1)
  - FEBRILE NEUTROPENIA [None]
